FAERS Safety Report 26209326 (Version 1)
Quarter: 2025Q4

REPORT INFORMATION
  Report Type: Report from Study
  Country: CA (occurrence: CA)
  Receive Date: 20251229
  Receipt Date: 20251229
  Transmission Date: 20260118
  Serious: Yes (Other)
  Sender: PFIZER
  Company Number: CA-PFIZER INC-202500237998

PATIENT
  Age: 42 Year
  Sex: Male

DRUGS (7)
  1. ADALIMUMAB [Suspect]
     Active Substance: ADALIMUMAB
     Indication: Hidradenitis
     Dosage: 160 MG, 1 EVERY 1 WEEKS
     Route: 058
  2. ADALIMUMAB [Suspect]
     Active Substance: ADALIMUMAB
     Dosage: 80 MG, 1 EVERY 1 WEEKS
     Route: 058
  3. ADALIMUMAB [Suspect]
     Active Substance: ADALIMUMAB
     Dosage: 40 MG, 1 EVERY 1 WEEKS
     Route: 058
  4. DOXYCYCLINE [Concomitant]
     Active Substance: DOXYCYCLINE
     Dosage: UNK
     Route: 065
  5. EMPAGLIFLOZIN\METFORMIN HYDROCHLORIDE [Concomitant]
     Active Substance: EMPAGLIFLOZIN\METFORMIN HYDROCHLORIDE
     Dosage: UNK
     Route: 065
  6. ROSUVASTATIN [Concomitant]
     Active Substance: ROSUVASTATIN
     Dosage: UNK
     Route: 065
  7. SEMAGLUTIDE [Concomitant]
     Active Substance: SEMAGLUTIDE
     Dosage: UNK
     Route: 065

REACTIONS (5)
  - Furuncle [Unknown]
  - Cystitis [Unknown]
  - Pain in extremity [Unknown]
  - Penile infection [Unknown]
  - Inappropriate schedule of product administration [Unknown]
